FAERS Safety Report 14543792 (Version 2)
Quarter: 2018Q2

REPORT INFORMATION
  Report Type: Report from Study
  Country: US (occurrence: US)
  Receive Date: 20180216
  Receipt Date: 20180629
  Transmission Date: 20180711
  Serious: Yes (Life-Threatening, Hospitalization, Other)
  Sender: FDA-Public Use
  Company Number: US-ACTELION-A-US2016-133570

PATIENT
  Age: 60 Year
  Sex: Female
  Weight: 78.91 kg

DRUGS (3)
  1. OPSUMIT [Suspect]
     Active Substance: MACITENTAN
     Indication: PULMONARY ARTERIAL HYPERTENSION
     Dosage: 10 MG, QD
     Route: 048
     Dates: start: 20151222
  2. ADCIRCA [Concomitant]
     Active Substance: TADALAFIL
  3. UPTRAVI [Concomitant]
     Active Substance: SELEXIPAG
     Indication: PULMONARY ARTERIAL HYPERTENSION

REACTIONS (23)
  - Haematochezia [Recovered/Resolved with Sequelae]
  - Gastrointestinal arteriovenous malformation [Unknown]
  - Red blood cell count decreased [Not Recovered/Not Resolved]
  - Conjunctivitis allergic [Unknown]
  - Abdominal pain [Not Recovered/Not Resolved]
  - Haematocrit decreased [Not Recovered/Not Resolved]
  - Diarrhoea haemorrhagic [Unknown]
  - Arthritis [Unknown]
  - Joint stiffness [Unknown]
  - Anaemia [Not Recovered/Not Resolved]
  - Dyspepsia [Not Recovered/Not Resolved]
  - Diarrhoea [Not Recovered/Not Resolved]
  - Eosinophilic colitis [Not Recovered/Not Resolved]
  - Haemoglobin decreased [Not Recovered/Not Resolved]
  - Pain in extremity [Recovered/Resolved]
  - Systemic scleroderma [Unknown]
  - Peripheral swelling [Recovered/Resolved]
  - Gastrointestinal angiodysplasia [Unknown]
  - Neuroendocrine tumour [Not Recovered/Not Resolved]
  - Sleep apnoea syndrome [Not Recovered/Not Resolved]
  - Gastrooesophageal reflux disease [Not Recovered/Not Resolved]
  - Feeling cold [Unknown]
  - Tunnel vision [Not Recovered/Not Resolved]

NARRATIVE: CASE EVENT DATE: 20160106
